FAERS Safety Report 11178224 (Version 1)
Quarter: 2015Q2

REPORT INFORMATION
  Report Type: Spontaneous
  Country: US (occurrence: US)
  Receive Date: 20150610
  Receipt Date: 20150610
  Transmission Date: 20150821
  Serious: Yes (Other)
  Sender: FDA-Public Use
  Company Number: US-JNJFOC-20150601612

PATIENT
  Sex: Female
  Weight: 47.63 kg

DRUGS (7)
  1. BUSPAR [Concomitant]
     Active Substance: BUSPIRONE HYDROCHLORIDE
     Route: 065
  2. ANTIPYRINE [Concomitant]
     Active Substance: ANTIPYRINE
     Indication: HYPOTHYROIDISM
     Route: 065
  3. BENZOCAINE. [Concomitant]
     Active Substance: BENZOCAINE
     Indication: HYPOTHYROIDISM
     Route: 065
  4. PROGESTERONE. [Concomitant]
     Active Substance: PROGESTERONE
     Indication: HORMONE REPLACEMENT THERAPY
     Route: 065
  5. REMICADE [Suspect]
     Active Substance: INFLIXIMAB
     Indication: PSORIATIC ARTHROPATHY
     Dosage: BETWEEN 2009/2010
     Route: 042
     Dates: start: 2009, end: 2010
  6. WELLBUTRIN [Concomitant]
     Active Substance: BUPROPION HYDROCHLORIDE
     Route: 065
  7. ESTRADIOL. [Concomitant]
     Active Substance: ESTRADIOL
     Indication: HORMONE REPLACEMENT THERAPY
     Route: 065

REACTIONS (5)
  - Varicella [Recovered/Resolved]
  - Haemorrhage [Unknown]
  - Drug hypersensitivity [Unknown]
  - Joint swelling [Recovered/Resolved]
  - Arthralgia [Recovered/Resolved]
